FAERS Safety Report 9850849 (Version 1)
Quarter: 2014Q1

REPORT INFORMATION
  Report Type: Spontaneous
  Country: DE (occurrence: DE)
  Receive Date: 20140128
  Receipt Date: 20140128
  Transmission Date: 20141002
  Serious: Yes (Hospitalization)
  Sender: FDA-Public Use
  Company Number: DE-TEVA-458427GER

PATIENT
  Age: 73 Year
  Sex: Female

DRUGS (10)
  1. VENLAFAXIN [Suspect]
     Indication: DEPRESSION
     Dosage: 75 MILLIGRAM DAILY;
     Route: 048
  2. HCT [Suspect]
     Indication: DIURETIC THERAPY
     Dosage: 12.5 MILLIGRAM DAILY;
     Route: 048
  3. SEROQUEL PROLONG [Concomitant]
     Dosage: 300 MILLIGRAM DAILY;
     Route: 048
  4. SEROQUEL [Concomitant]
     Dosage: 200 MILLIGRAM DAILY;
     Route: 048
  5. VALDOXAN [Concomitant]
     Dosage: 25 MILLIGRAM DAILY;
     Route: 048
  6. OMEPRAZOL [Concomitant]
     Dosage: 20 MILLIGRAM DAILY;
     Route: 048
  7. SPIRONOLACTON 50MG [Concomitant]
     Dosage: 25 MILLIGRAM DAILY;
     Route: 048
  8. LORZAAR PLUS 50/12.5 MG [Concomitant]
     Route: 048
  9. ZOP [Concomitant]
     Route: 048
  10. SIMVASTATIN [Concomitant]
     Dosage: 10 MILLIGRAM DAILY;
     Route: 048

REACTIONS (2)
  - Hyponatraemia [Recovering/Resolving]
  - Inappropriate antidiuretic hormone secretion [Recovering/Resolving]
